FAERS Safety Report 9097911 (Version 3)
Quarter: 2013Q1

REPORT INFORMATION
  Report Type: Report from Study
  Country: GB (occurrence: GB)
  Receive Date: 20130212
  Receipt Date: 20130318
  Transmission Date: 20140127
  Serious: Yes (Other)
  Sender: FDA-Public Use
  Company Number: GB-ROCHE-1188782

PATIENT
  Age: 62 Year
  Sex: Female
  Weight: 64.3 kg

DRUGS (2)
  1. VEMURAFENIB [Suspect]
     Indication: METASTATIC MALIGNANT MELANOMA
     Dosage: LAST DOSE PRIOR TO SAE: 17/MAY/2012
     Route: 048
     Dates: start: 20120223
  2. VEMURAFENIB [Suspect]
     Dosage: LAST DOSE PRIOR TO SAE: 04/JAN/2013
     Route: 048
     Dates: start: 20120517

REACTIONS (1)
  - Mycosis fungoides [Recovered/Resolved]
